FAERS Safety Report 5636053-2 (Version None)
Quarter: 2008Q1

REPORT INFORMATION
  Report Type: 
  Country: None (occurrence: None)
  Receive Date: 20080219
  Receipt Date: 20080207
  Transmission Date: 20080703
  Serious: Yes (Life-Threatening)
  Sender: FDA-Public Use
  Company Number: DSM-2008-00171

PATIENT
  Age: 68 Year
  Sex: Male

DRUGS (1)
  1. VOTUM PLUS (TABLET) [Suspect]
     Indication: ESSENTIAL HYPERTENSION
     Dosage: 20/12.5MG (1 IN 1 D), ORAL
     Route: 048
     Dates: start: 20080201

REACTIONS (1)
  - THROMBOSIS [None]
